FAERS Safety Report 24020684 (Version 1)
Quarter: 2024Q2

REPORT INFORMATION
  Report Type: Spontaneous
  Country: US (occurrence: US)
  Receive Date: 20240627
  Receipt Date: 20240627
  Transmission Date: 20240716
  Serious: Yes (Hospitalization, Other)
  Sender: FDA-Public Use
  Company Number: US-GSK-US2024077216

PATIENT

DRUGS (2)
  1. TRELEGY ELLIPTA [Suspect]
     Active Substance: FLUTICASONE FUROATE\UMECLIDINIUM BROMIDE\VILANTEROL TRIFENATATE
     Indication: Emphysema
     Dosage: UNK,TRELEGY ELLIPTA UNKNOWN DOSAGE OR DIRECTIONS
     Dates: start: 202403
  2. OXYGEN [Concomitant]
     Active Substance: OXYGEN
     Indication: Emphysema
     Dosage: UNK

REACTIONS (4)
  - Pneumonia [Unknown]
  - Vomiting [Unknown]
  - Carbon dioxide increased [Unknown]
  - Aspiration [Unknown]

NARRATIVE: CASE EVENT DATE: 20240601
